FAERS Safety Report 13143853 (Version 2)
Quarter: 2017Q1

REPORT INFORMATION
  Report Type: Spontaneous
  Country: IN (occurrence: IN)
  Receive Date: 20170124
  Receipt Date: 20170330
  Transmission Date: 20170428
  Serious: No
  Sender: FDA-Public Use
  Company Number: IN-NOVEL LABORATORIES, INC-2017-00161

PATIENT
  Sex: Male
  Weight: 67 kg

DRUGS (2)
  1. ZOLFRESH [Suspect]
     Active Substance: ZOLPIDEM TARTRATE
     Indication: INSOMNIA
     Dosage: UNK UNK,QD,
     Route: 048
  2. ZOLFRESH [Suspect]
     Active Substance: ZOLPIDEM TARTRATE
     Indication: INSOMNIA
     Dosage: UNK UNK,QD,
     Route: 048

REACTIONS (1)
  - Amnesia [Recovered/Resolved]
